FAERS Safety Report 4986336-4 (Version None)
Quarter: 2006Q2

REPORT INFORMATION
  Report Type: 
  Country: None (occurrence: None)
  Receive Date: 20060428
  Receipt Date: 20051114
  Transmission Date: 20061013
  Serious: Yes (Life-Threatening, Hospitalization)
  Sender: FDA-Public Use
  Company Number: US-MERCK-0511USA02525

PATIENT
  Age: 59 Year
  Sex: Male
  Weight: 75 kg

DRUGS (10)
  1. VIOXX [Suspect]
     Indication: ARTHRITIS
     Route: 048
     Dates: start: 20000523, end: 20021127
  2. VIOXX [Suspect]
     Route: 048
     Dates: start: 20000523, end: 20021127
  3. LESCOL [Concomitant]
     Indication: BLOOD CHOLESTEROL INCREASED
     Route: 065
     Dates: start: 20000101, end: 20020101
  4. ALLOPURINOL [Concomitant]
     Indication: GOUT
     Route: 065
  5. ERYTHROMYCIN [Concomitant]
     Indication: BACTERIAL INFECTION
     Route: 065
  6. CIPROFLOXACIN HCL [Concomitant]
     Indication: BACTERIAL INFECTION
     Route: 065
  7. NORVASC [Concomitant]
     Indication: HYPERTENSION
     Route: 065
  8. FOLIC ACID [Concomitant]
     Indication: HYPOVITAMINOSIS
     Route: 065
  9. NIASPAN [Concomitant]
     Indication: HYPERTENSION
     Route: 065
  10. DIPHENOXYLATE [Concomitant]
     Indication: GASTROOESOPHAGEAL REFLUX DISEASE
     Route: 065

REACTIONS (13)
  - ADRENAL MASS [None]
  - ANAEMIA [None]
  - CARDIAC DISORDER [None]
  - CHOLELITHIASIS [None]
  - CORONARY ARTERY DISEASE [None]
  - GOUTY ARTHRITIS [None]
  - HAEMATURIA [None]
  - HAEMORRHAGE [None]
  - HYPOTENSION [None]
  - JOINT SWELLING [None]
  - MYOCARDIAL INFARCTION [None]
  - OSTEOARTHRITIS [None]
  - VENTRICULAR FIBRILLATION [None]
